FAERS Safety Report 7460248-9 (Version None)
Quarter: 2011Q2

REPORT INFORMATION
  Report Type: 
  Country: None (occurrence: None)
  Receive Date: 20110505
  Receipt Date: 20110502
  Transmission Date: 20111010
  Serious: Yes (Hospitalization)
  Sender: FDA-Public Use
  Company Number: FR-ROCHE-774865

PATIENT
  Sex: Female
  Weight: 50 kg

DRUGS (1)
  1. CAPECITABINE [Suspect]
     Indication: BREAST CANCER
     Dosage: FREQUENCY: FROM D1 TO D14 EVERY 3 WEEKS. LAST DOSE PRIOR TO SAE: 17 FEBRUARY 2010.
     Route: 048
     Dates: start: 20100115

REACTIONS (1)
  - GENERAL PHYSICAL HEALTH DETERIORATION [None]
